FAERS Safety Report 20698164 (Version 1)
Quarter: 2022Q2

REPORT INFORMATION
  Report Type: Spontaneous
  Country: ES (occurrence: ES)
  Receive Date: 20220412
  Receipt Date: 20220412
  Transmission Date: 20220721
  Serious: Yes (Hospitalization)
  Sender: FDA-Public Use
  Company Number: None

PATIENT
  Age: 71 Year
  Sex: Male

DRUGS (1)
  1. KEYTRUDA [Suspect]
     Active Substance: PEMBROLIZUMAB
     Indication: Lung neoplasm malignant
     Dosage: STRENGTH: 25MG/ML, 1 VIAL OF 4 ML
     Route: 042
     Dates: start: 20220310, end: 2022

REACTIONS (5)
  - Diarrhoea [Recovering/Resolving]
  - Hypernatraemia [Recovering/Resolving]
  - Hepatitis [Recovering/Resolving]
  - Pneumonitis [Recovering/Resolving]
  - Pemphigus [Recovering/Resolving]

NARRATIVE: CASE EVENT DATE: 20220317
